FAERS Safety Report 6497904-5 (Version None)
Quarter: 2009Q4

REPORT INFORMATION
  Report Type: 
  Country: None (occurrence: None)
  Receive Date: 20091215
  Receipt Date: 20091204
  Transmission Date: 20100525
  Serious: Yes (Hospitalization)
  Sender: FDA-Public Use
  Company Number: AU-NOVOPROD-301642

PATIENT
  Sex: Female

DRUGS (4)
  1. MIXTARD HUMAN 70/30 [Suspect]
     Indication: TYPE 2 DIABETES MELLITUS
     Dosage: 30 IU AT MORNING, 25 IU AT NIGHT
     Route: 058
  2. MIXTARD HUMAN 70/30 [Suspect]
     Dosage: 25 IU AT MORNING, 18 IU AT NIGHT
     Route: 058
  3. NOVOPEN 3 [Concomitant]
     Indication: TYPE 2 DIABETES MELLITUS
  4. BLOOD PRESSURE MEDICATION [Concomitant]

REACTIONS (4)
  - BLOOD GLUCOSE DECREASED [None]
  - FALL [None]
  - HYPOTENSION [None]
  - OVERDOSE [None]
